FAERS Safety Report 21134176 (Version 2)
Quarter: 2022Q3

REPORT INFORMATION
  Report Type: Spontaneous
  Country: ES (occurrence: ES)
  Receive Date: 20220726
  Receipt Date: 20220801
  Transmission Date: 20221027
  Serious: Yes (Other)
  Sender: FDA-Public Use
  Company Number: ES-BIOGEN-2022BI01138342

PATIENT
  Sex: Female

DRUGS (3)
  1. PREGABALIN [Suspect]
     Active Substance: PREGABALIN
     Indication: Pain in extremity
     Dosage: 150 MG, 1X/DAY (AT 9:00)
     Route: 065
  2. PREGABALIN [Suspect]
     Active Substance: PREGABALIN
     Dosage: 200 MG, 1X/DAY (AT 17:00)
  3. TECFIDERA [Suspect]
     Active Substance: DIMETHYL FUMARATE
     Indication: Relapsing-remitting multiple sclerosis
     Dosage: UNK
     Route: 048
     Dates: end: 202206

REACTIONS (11)
  - Multiple sclerosis relapse [Not Recovered/Not Resolved]
  - Flushing [Unknown]
  - Vitamin B12 decreased [Unknown]
  - Dyspepsia [Unknown]
  - Feeling drunk [Unknown]
  - Gastritis [Unknown]
  - Rash [Unknown]
  - Blood iron decreased [Unknown]
  - Discomfort [Not Recovered/Not Resolved]
  - Weight increased [Unknown]
  - Peripheral swelling [Unknown]
